FAERS Safety Report 7146641-2 (Version None)
Quarter: 2010Q4

REPORT INFORMATION
  Report Type: 
  Country: None (occurrence: None)
  Receive Date: 20101208
  Receipt Date: 20101124
  Transmission Date: 20110411
  Serious: Yes (Other)
  Sender: FDA-Public Use
  Company Number: BR-GENENTECH-301291

PATIENT
  Sex: Female
  Weight: 68 kg

DRUGS (5)
  1. RITUXIMAB [Suspect]
     Indication: SYSTEMIC LUPUS ERYTHEMATOSUS
     Dosage: 1000 MG, UNK
     Route: 042
     Dates: start: 20100419
  2. RITUXIMAB [Suspect]
     Dosage: UNK
     Route: 042
     Dates: start: 20100505
  3. TYLENOL (CAPLET) [Concomitant]
     Indication: PRODUCT USED FOR UNKNOWN INDICATION
     Dosage: 750 MG, UNK
  4. NOVALGINA [Concomitant]
     Indication: PRODUCT USED FOR UNKNOWN INDICATION
  5. DORFLEX [Concomitant]
     Indication: PRODUCT USED FOR UNKNOWN INDICATION

REACTIONS (9)
  - ALOPECIA [None]
  - DRUG INEFFECTIVE [None]
  - DYSGEUSIA [None]
  - HAIR TEXTURE ABNORMAL [None]
  - HEADACHE [None]
  - HOT FLUSH [None]
  - IMMUNODEFICIENCY [None]
  - SKIN LESION [None]
  - SYNCOPE [None]
